FAERS Safety Report 24205623 (Version 1)
Quarter: 2024Q3

REPORT INFORMATION
  Report Type: Spontaneous
  Country: US (occurrence: US)
  Receive Date: 20240813
  Receipt Date: 20240813
  Transmission Date: 20241017
  Serious: No
  Sender: MYLAN
  Company Number: US-MYLANLABS-2024M1071957

PATIENT
  Sex: Female

DRUGS (2)
  1. VALACYCLOVIR [Suspect]
     Active Substance: VALACYCLOVIR HYDROCHLORIDE
     Indication: Anogenital warts
     Dosage: UNK
     Route: 065
  2. VALACYCLOVIR [Suspect]
     Active Substance: VALACYCLOVIR HYDROCHLORIDE
     Dosage: 500 MILLIGRAM, QD (ONCE DAILY)
     Route: 048
     Dates: start: 202406

REACTIONS (6)
  - Urticaria [Recovered/Resolved]
  - Rash [Unknown]
  - Vulvovaginal dryness [Recovered/Resolved]
  - Vulvovaginal pruritus [Recovered/Resolved]
  - Product substitution issue [Unknown]
  - Therapeutic response changed [Unknown]

NARRATIVE: CASE EVENT DATE: 20240626
